FAERS Safety Report 21485159 (Version 2)
Quarter: 2023Q1

REPORT INFORMATION
  Report Type: Other
  Country: DE (occurrence: None)
  Receive Date: 20221020
  Receipt Date: 20230211
  Transmission Date: 20230418
  Serious: No
  Sender: FDA-Public Use
  Company Number: DE-ROCHE-2235102

PATIENT
  Age: 43 Year
  Sex: Female

DRUGS (7)
  1. OCREVUS [Suspect]
     Active Substance: OCRELIZUMAB
     Indication: Primary progressive multiple sclerosis
     Dosage: ON 17/DEC/2018, SHE RECEIVED OCRELIZUMAB 300 MG.
     Route: 042
     Dates: start: 20181203
  2. OCREVUS [Suspect]
     Active Substance: OCRELIZUMAB
     Dosage: SUBSEQUENT DOSE RECEIVED ON 13/JUN/2019
     Route: 042
  3. OCREVUS [Suspect]
     Active Substance: OCRELIZUMAB
     Dosage: 5TH INFUSION
     Route: 042
     Dates: start: 20200626
  4. OCREVUS [Suspect]
     Active Substance: OCRELIZUMAB
     Route: 042
     Dates: start: 20181217
  5. DALFAMPRIDINE [Concomitant]
     Active Substance: DALFAMPRIDINE
  6. VESIKUR [Concomitant]
     Active Substance: SOLIFENACIN SUCCINATE
  7. BACLOFEN [Concomitant]
     Active Substance: BACLOFEN

REACTIONS (7)
  - Infusion related reaction [Recovered/Resolved]
  - Fatigue [Recovered/Resolved]
  - Fatigue [Recovered/Resolved]
  - Drug ineffective [Unknown]
  - Dry throat [Recovered/Resolved]
  - COVID-19 [Recovered/Resolved]
  - Walking distance test abnormal [Not Recovered/Not Resolved]

NARRATIVE: CASE EVENT DATE: 20181203
